FAERS Safety Report 9158618 (Version 1)
Quarter: 2013Q1

REPORT INFORMATION
  Report Type: Spontaneous
  Country: BG (occurrence: BG)
  Receive Date: 20130312
  Receipt Date: 20130312
  Transmission Date: 20140127
  Serious: Yes (Other)
  Sender: FDA-Public Use
  Company Number: PHHY2013BG023407

PATIENT
  Age: 63 Year
  Sex: Female

DRUGS (1)
  1. TULIP [Suspect]
     Indication: BLOOD CHOLESTEROL INCREASED
     Dosage: 10 MG, UNK
     Route: 048
     Dates: start: 201302, end: 201302

REACTIONS (2)
  - Rash pruritic [Recovered/Resolved]
  - Oedema peripheral [Recovered/Resolved]
